FAERS Safety Report 8930830 (Version 1)
Quarter: 2012Q4

REPORT INFORMATION
  Report Type: 
  Country: FR (occurrence: FR)
  Receive Date: 20121128
  Receipt Date: 20121128
  Transmission Date: 20130627
  Serious: Yes (Hospitalization)
  Sender: FDA-Public Use
  Company Number: FR-ASTRAZENECA-2012SE88921

PATIENT
  Age: 20766 Day
  Sex: Male

DRUGS (13)
  1. NAROPEINE [Suspect]
     Route: 058
     Dates: start: 20121019, end: 20121019
  2. CRESTOR [Concomitant]
  3. ALPRAZOLAM [Concomitant]
  4. VITAMIN B1 [Concomitant]
  5. VITAMIN B6 [Concomitant]
  6. EUPANTOL [Concomitant]
  7. KEPPRA [Concomitant]
  8. MEDROL [Concomitant]
  9. MOVICOL [Concomitant]
  10. NICOBION [Concomitant]
  11. NICOPATCH [Concomitant]
  12. SOTALEX [Concomitant]
  13. LOCAL ANTISEPSIS [Concomitant]
     Dates: start: 20121019

REACTIONS (2)
  - Anaphylactic shock [Recovered/Resolved]
  - Urticaria [Recovered/Resolved]
